FAERS Safety Report 23784902 (Version 1)
Quarter: 2024Q2

REPORT INFORMATION
  Report Type: Spontaneous
  Country: US (occurrence: None)
  Receive Date: 20240425
  Receipt Date: 20240425
  Transmission Date: 20240715
  Serious: No
  Sender: FDA-Public Use
  Company Number: None

PATIENT
  Age: 74 Year
  Sex: Female
  Weight: 74 kg

DRUGS (10)
  1. KISQALI [Suspect]
     Active Substance: RIBOCICLIB
     Dosage: OTHER FREQUENCY : 2 TABLETS DAILY;?
     Route: 048
     Dates: start: 20240103
  2. LOVENOX [Concomitant]
     Active Substance: ENOXAPARIN SODIUM
  3. GABAPENTIN [Concomitant]
     Active Substance: GABAPENTIN
  4. CRESTOR [Concomitant]
  5. Orserdu [Concomitant]
  6. CYCLOBENZAPRINE [Concomitant]
  7. OMEPRAZOLE [Concomitant]
  8. TRAZODONE [Concomitant]
     Active Substance: TRAZODONE HYDROCHLORIDE
  9. KRILL OIL [Concomitant]
     Active Substance: DIETARY SUPPLEMENT\KRILL OIL
  10. Lutein [Concomitant]

REACTIONS (3)
  - Back pain [None]
  - Urinary tract infection [None]
  - Pulmonary oedema [None]

NARRATIVE: CASE EVENT DATE: 20240401
